FAERS Safety Report 12986459 (Version 1)
Quarter: 2016Q4

REPORT INFORMATION
  Report Type: Report from Study
  Country: US (occurrence: US)
  Receive Date: 20161130
  Receipt Date: 20161130
  Transmission Date: 20170207
  Serious: No
  Sender: FDA-Public Use
  Company Number: US-009507513-1611USA008869

PATIENT
  Age: 38 Year
  Sex: Male

DRUGS (9)
  1. SINEMET [Suspect]
     Active Substance: CARBIDOPA\LEVODOPA
     Dosage: 0.5 TABLET, 4 IN 1 D
     Route: 048
     Dates: start: 20150713
  2. MELATONIN [Concomitant]
     Active Substance: MELATONIN
     Dosage: 1 TABLET AT BEDTIME (1 TABLET, 1 IN 1 D)
     Route: 048
     Dates: start: 20150713
  3. LEXAPRO [Concomitant]
     Active Substance: ESCITALOPRAM OXALATE
     Dosage: 1 TABLET EVERY MORNING (1 TABLET, 1 IN 1 D)
     Route: 048
     Dates: start: 20150713
  4. DUOPA [Suspect]
     Active Substance: CARBIDOPA\LEVODOPA
     Dosage: UNK, ROUTE OF ADMINISTRATION: JEJUNAL
     Dates: start: 20150729
  5. CYMBALTA [Concomitant]
     Active Substance: DULOXETINE HYDROCHLORIDE
     Dosage: 1 CAPSULE, 1 IN 1 D
     Route: 048
     Dates: start: 20160123
  6. TRAZODONE HYDROCHLORIDE. [Concomitant]
     Active Substance: TRAZODONE HYDROCHLORIDE
     Dosage: 1 TABLET AT BEDTIME (1 TABLET, 1 IN 1 D)
     Dates: start: 20150713
  7. DUOPA [Suspect]
     Active Substance: CARBIDOPA\LEVODOPA
     Indication: PARKINSON^S DISEASE
     Dosage: UNK, ROUTE OF ADMINISTRATION: JEJUNAL
     Dates: start: 20150729
  8. CLONAZEPAM. [Concomitant]
     Active Substance: CLONAZEPAM
     Dosage: 0.5 TABLET, 2 IN 1 D (DAILY DOSE: HALF TO 1 TABLET)
     Route: 048
     Dates: start: 20150713
  9. REMERON [Concomitant]
     Active Substance: MIRTAZAPINE
     Dosage: 1 TABLET AT BEDTIME (1 TABLET, 1 IN 1 D)
     Route: 048
     Dates: start: 20150713

REACTIONS (12)
  - Freezing phenomenon [Not Recovered/Not Resolved]
  - Fatigue [Not Recovered/Not Resolved]
  - Head discomfort [Not Recovered/Not Resolved]
  - Cough [Recovering/Resolving]
  - Arthralgia [Unknown]
  - Device issue [Not Recovered/Not Resolved]
  - Stoma site reaction [Not Recovered/Not Resolved]
  - Nasopharyngitis [Recovering/Resolving]
  - Stoma site erythema [Recovered/Resolved]
  - Posture abnormal [Not Recovered/Not Resolved]
  - Infection [Unknown]
  - Speech disorder [Not Recovered/Not Resolved]

NARRATIVE: CASE EVENT DATE: 201511
